FAERS Safety Report 8807786 (Version 1)
Quarter: 2012Q4

REPORT INFORMATION
  Report Type: 
  Country: JP (occurrence: JP)
  Receive Date: 20120925
  Receipt Date: 20120925
  Transmission Date: 20130627
  Serious: Yes (Other)
  Sender: FDA-Public Use
  Company Number: JP-UCBSA-067047

PATIENT
  Age: 19 Year
  Sex: Male

DRUGS (5)
  1. E KEPPRA [Suspect]
     Indication: EPILEPSY
     Route: 048
  2. E KEPPRA [Suspect]
     Indication: EPILEPSY
     Dosage: DOSE INCREASE
     Route: 048
  3. XYZAL [Suspect]
     Indication: DERMATITIS ATOPIC
     Route: 048
  4. DEPAKENE [Concomitant]
     Indication: EPILEPSY
     Dosage: DOSAGE FORM: POR
     Route: 048
  5. NIPOLAZIN [Concomitant]
     Indication: PRURITUS
     Dosage: DOSAGE FORM:POR
     Route: 048

REACTIONS (1)
  - Epilepsy [Recovered/Resolved]
